FAERS Safety Report 12608679 (Version 2)
Quarter: 2016Q3

REPORT INFORMATION
  Report Type: Spontaneous
  Country: US (occurrence: US)
  Receive Date: 20160729
  Receipt Date: 20160808
  Transmission Date: 20161109
  Serious: Yes (Death, Other)
  Sender: FDA-Public Use
  Company Number: US-B.I. PHARMACEUTICALS,INC./RIDGEFIELD-2016-BI-49392BP

PATIENT
  Sex: Male

DRUGS (1)
  1. GILOTRIF [Suspect]
     Active Substance: AFATINIB
     Indication: LUNG ADENOCARCINOMA METASTATIC
     Route: 065

REACTIONS (5)
  - Pneumonia [Unknown]
  - Pericardial effusion [Unknown]
  - Death [Fatal]
  - Atrial fibrillation [Unknown]
  - Metastases to heart [Unknown]
